FAERS Safety Report 10181385 (Version 1)
Quarter: 2014Q2

REPORT INFORMATION
  Report Type: Report from Study
  Country: US (occurrence: US)
  Receive Date: 20140519
  Receipt Date: 20140519
  Transmission Date: 20141212
  Serious: Yes (Other)
  Sender: FDA-Public Use
  Company Number: US-SA-2014SA060430

PATIENT
  Sex: Male

DRUGS (2)
  1. LANTUS [Suspect]
     Indication: PRODUCT USED FOR UNKNOWN INDICATION
     Dosage: DOSE:135 UNIT(S)
     Route: 065
     Dates: end: 201403
  2. APIDRA [Suspect]
     Indication: DIABETES MELLITUS
     Route: 065
     Dates: end: 201403

REACTIONS (2)
  - Coma [Unknown]
  - Amnesia [Unknown]
